FAERS Safety Report 22630373 (Version 1)
Quarter: 2023Q2

REPORT INFORMATION
  Report Type: Spontaneous
  Country: NL (occurrence: NL)
  Receive Date: 20230622
  Receipt Date: 20230622
  Transmission Date: 20230721
  Serious: Yes (Hospitalization)
  Sender: FDA-Public Use
  Company Number: None

PATIENT
  Sex: Male
  Weight: 82 kg

DRUGS (2)
  1. ZOLPIDEM [Suspect]
     Active Substance: ZOLPIDEM TARTRATE
     Indication: Sleep disorder
     Dosage: 20 MILLIGRAM DAILY; BRAND NAME NOT SPECIFIED
     Dates: start: 20190528
  2. BRIVIACT [Concomitant]
     Active Substance: BRIVARACETAM
     Indication: Epilepsy
     Dosage: 100 MILLIGRAM DAILY;
     Dates: start: 20190709

REACTIONS (1)
  - Epilepsy [Recovering/Resolving]
